FAERS Safety Report 5085455-4 (Version None)
Quarter: 2006Q3

REPORT INFORMATION
  Report Type: 
  Country: None (occurrence: None)
  Receive Date: 20060803
  Receipt Date: 20060725
  Transmission Date: 20061208
  Serious: Yes (Hospitalization, Other)
  Sender: FDA-Public Use
  Company Number: 2006BH011784

PATIENT
  Age: 19 Month
  Sex: Male
  Weight: 11.1 kg

DRUGS (1)
  1. ADVATE [Suspect]
     Indication: ACQUIRED HAEMOPHILIA
     Dosage: 200 U/KG; AS NEEDED; IVDRP
     Route: 041

REACTIONS (2)
  - FACTOR VIII INHIBITION [None]
  - THERAPY NON-RESPONDER [None]
